FAERS Safety Report 8249427-0 (Version None)
Quarter: 2012Q1

REPORT INFORMATION
  Report Type: 
  Country: None (occurrence: None)
  Receive Date: 20120328
  Receipt Date: 20120316
  Transmission Date: 20120608
  Serious: Yes (Other)
  Sender: FDA-Public Use
  Company Number: IMP_05782_2012

PATIENT
  Age: 68 Year
  Sex: Male

DRUGS (5)
  1. CORTICOSTEROIDS [Concomitant]
  2. PANTOPRAZOLE [Concomitant]
  3. OMEPRAZOLE [Suspect]
     Indication: DRUG RASH WITH EOSINOPHILIA AND SYSTEMIC SYMPTOMS
     Dosage: (ORAL CHALLENGE TEST ORAL), (DF)
     Route: 048
  4. OMEPRAZOLE [Suspect]
     Indication: RASH ERYTHEMATOUS
     Dosage: (ORAL CHALLENGE TEST ORAL), (DF)
     Route: 048
  5. OMEPRAZOLE [Suspect]
     Indication: PYREXIA
     Dosage: (ORAL CHALLENGE TEST ORAL), (DF)
     Route: 048

REACTIONS (3)
  - SELF-MEDICATION [None]
  - DRUG RASH WITH EOSINOPHILIA AND SYSTEMIC SYMPTOMS [None]
  - SKIN TEST POSITIVE [None]
